FAERS Safety Report 8516940-8 (Version None)
Quarter: 2012Q3

REPORT INFORMATION
  Report Type: 
  Country: None (occurrence: None)
  Receive Date: 20120718
  Receipt Date: 20120710
  Transmission Date: 20120928
  Serious: Yes (Hospitalization)
  Sender: FDA-Public Use
  Company Number: FI-ELI_LILLY_AND_COMPANY-FI201207002901

PATIENT
  Sex: Female

DRUGS (7)
  1. FORTEO [Suspect]
     Indication: OSTEOPOROSIS
     Dosage: 20 UG, QD
     Route: 058
     Dates: start: 20110907
  2. OXIKLORIN [Concomitant]
     Indication: MUSCULOSKELETAL PAIN
     Dosage: UNK
  3. CALCIUM + VITAMIN D [Concomitant]
     Indication: MEDICAL DIET
     Dosage: UNK
  4. NEXIUM [Concomitant]
     Indication: ANTACID THERAPY
     Dosage: UNK
  5. OXYCONTIN [Concomitant]
     Indication: PAIN
     Dosage: UNK
  6. PRIMPERAN TAB [Concomitant]
     Indication: NAUSEA
     Dosage: UNK
  7. PREDNISOLONE [Concomitant]
     Indication: MUSCULOSKELETAL PAIN
     Dosage: UNK

REACTIONS (1)
  - OEDEMA PERIPHERAL [None]
